FAERS Safety Report 11317093 (Version 1)
Quarter: 2015Q3

REPORT INFORMATION
  Report Type: Spontaneous
  Country: IN (occurrence: None)
  Receive Date: 20150727
  Receipt Date: 20150727
  Transmission Date: 20151125
  Serious: Yes (Disabling, Other)
  Sender: FDA-Public Use
  Company Number: None

PATIENT
  Age: 34 Year
  Sex: Male
  Weight: 115 kg

DRUGS (2)
  1. FLUANXOL [Suspect]
     Active Substance: FLUPENTIXOL
     Route: 048
  2. AMITRIPTYLINE TABLETS 10MG [Suspect]
     Active Substance: AMITRIPTYLINE
     Indication: HYPERTENSION
     Dosage: 2 PILLS
     Route: 048

REACTIONS (4)
  - Vision blurred [None]
  - Renal failure [None]
  - Confusional state [None]
  - Balance disorder [None]

NARRATIVE: CASE EVENT DATE: 20150724
